FAERS Safety Report 7469436-9 (Version None)
Quarter: 2011Q2

REPORT INFORMATION
  Report Type: 
  Country: None (occurrence: None)
  Receive Date: 20110429
  Receipt Date: 20110418
  Transmission Date: 20111010
  Serious: Yes (Other)
  Sender: FDA-Public Use
  Company Number: FK201100778

PATIENT
  Age: 32 Year
  Sex: Male

DRUGS (7)
  1. SOTALOL (SOTALOL) [Concomitant]
  2. LISINOPRIL [Concomitant]
  3. COUMADIN [Concomitant]
  4. AMIODARONE HCL [Suspect]
     Dosage: 400MG TID, ORAL
     Route: 048
  5. AMIODARONE HYDROCHLORIDE [Suspect]
     Indication: ATRIAL TACHYCARDIA
     Dosage: 250 MG, 2 DOSES, INTRAVENOUS
     Route: 042
  6. DIGOXIN [Concomitant]
  7. FUROSEMIDE [Concomitant]

REACTIONS (2)
  - PAIN IN EXTREMITY [None]
  - MUSCLE SPASMS [None]
